FAERS Safety Report 19407642 (Version 1)
Quarter: 2021Q2

REPORT INFORMATION
  Report Type: Report from Study
  Country: None (occurrence: US)
  Receive Date: 20210612
  Receipt Date: 20210612
  Transmission Date: 20210717
  Serious: Yes (Hospitalization)
  Sender: FDA-Public Use
  Company Number: US-ABBVIE-21K-163-3943990-00

PATIENT
  Age: 67 Year
  Sex: Male

DRUGS (2)
  1. RINVOQ [Suspect]
     Active Substance: UPADACITINIB
     Indication: RHEUMATOID ARTHRITIS
     Dosage: ER
     Route: 048
     Dates: start: 202008
  2. RINVOQ [Suspect]
     Active Substance: UPADACITINIB
     Dosage: ER
     Route: 048

REACTIONS (2)
  - Sepsis [Unknown]
  - Pain [Unknown]

NARRATIVE: CASE EVENT DATE: 202106
